FAERS Safety Report 9917880 (Version 1)
Quarter: 2014Q1

REPORT INFORMATION
  Report Type: Spontaneous
  Country: FR (occurrence: FR)
  Receive Date: 20140221
  Receipt Date: 20140221
  Transmission Date: 20141002
  Serious: Yes (Other)
  Sender: FDA-Public Use
  Company Number: FR-ROCHE-1354110

PATIENT
  Age: 30 Year
  Sex: Male

DRUGS (6)
  1. PEGASYS [Suspect]
     Indication: HEPATITIS C
     Route: 058
  2. RIBAVIRIN [Suspect]
     Indication: HEPATITIS C
     Route: 065
  3. NOZINAN (FRANCE) [Concomitant]
     Indication: PSYCHOTIC DISORDER
     Route: 048
  4. ATARAX (FRANCE) [Concomitant]
     Indication: PSYCHOTIC DISORDER
     Route: 048
  5. RITALIN [Concomitant]
  6. VENLAFAXINE [Concomitant]

REACTIONS (2)
  - Thrombocytopenia [Recovered/Resolved]
  - Blood creatine phosphokinase increased [Not Recovered/Not Resolved]
